FAERS Safety Report 4552454-8 (Version None)
Quarter: 2005Q1

REPORT INFORMATION
  Report Type: 
  Country: None (occurrence: None)
  Receive Date: 20050114
  Receipt Date: 20040120
  Transmission Date: 20050727
  Serious: Yes (Hospitalization, Other)
  Sender: FDA-Public Use
  Company Number: US-BRISTOL-MYERS SQUIBB COMPANY-12482048

PATIENT
  Age: 42 Year
  Sex: Male

DRUGS (6)
  1. PLATINOL [Suspect]
     Indication: TESTIS CANCER
     Route: 042
     Dates: start: 20040112, end: 20040116
  2. KYTRIL [Concomitant]
     Indication: PREMEDICATION
     Dates: start: 20040112, end: 20040116
  3. DECADRON [Concomitant]
     Indication: PREMEDICATION
     Dates: start: 20040112, end: 20040112
  4. DECADRON [Concomitant]
     Dates: start: 20040113, end: 20040116
  5. GLUTAMINE [Concomitant]
  6. COUMADIN [Concomitant]

REACTIONS (2)
  - DEAFNESS [None]
  - OVERDOSE [None]
